FAERS Safety Report 4965780-5 (Version None)
Quarter: 2006Q2

REPORT INFORMATION
  Report Type: 
  Country: None (occurrence: None)
  Receive Date: 20060405
  Receipt Date: 20060405
  Transmission Date: 20061013
  Serious: Yes (Hospitalization)
  Sender: FDA-Public Use
  Company Number: None

PATIENT
  Age: 81 Year
  Sex: Female
  Weight: 74 kg

DRUGS (1)
  1. VENOFER [Suspect]
     Indication: NEPHROGENIC ANAEMIA
     Dosage: 100 MG  WEEKLY  IV
     Route: 042
     Dates: start: 20060329, end: 20060329

REACTIONS (3)
  - BURNING SENSATION [None]
  - INJECTION SITE EXTRAVASATION [None]
  - INJECTION SITE REACTION [None]
